FAERS Safety Report 8969915 (Version 2)
Quarter: 2012Q4

REPORT INFORMATION
  Report Type: 
  Country: US (occurrence: US)
  Receive Date: 20121217
  Receipt Date: 20121219
  Transmission Date: 20130627
  Serious: Yes (Other)
  Sender: FDA-Public Use
  Company Number: US-PFIZER INC-2012311890

PATIENT
  Age: 40 Year
  Sex: Female
  Weight: 77.1 kg

DRUGS (8)
  1. ROBITUSSIN DM [Suspect]
     Indication: SICKNESS
     Dosage: UNK
     Dates: start: 200811
  2. ROBITUSSIN DM [Suspect]
     Indication: BRONCHITIS
     Dosage: 4 gulps every hour
  3. PROZAC [Concomitant]
     Indication: BIPOLAR DISORDER
     Dosage: UNK
  4. PROZAC [Concomitant]
     Indication: BORDERLINE PERSONALITY DISORDER
  5. WELLBUTRIN [Concomitant]
     Indication: BIPOLAR DISORDER
     Dosage: UNK
  6. WELLBUTRIN [Concomitant]
     Indication: BORDERLINE PERSONALITY DISORDER
  7. RISPERDAL [Concomitant]
     Indication: BIPOLAR DISORDER
     Dosage: UNK
  8. RISPERDAL [Concomitant]
     Indication: BORDERLINE PERSONALITY DISORDER

REACTIONS (13)
  - Intentional overdose [Unknown]
  - Hyperhidrosis [Unknown]
  - Muscle twitching [Unknown]
  - Dyskinesia [Unknown]
  - Weight increased [Unknown]
  - Electrolyte imbalance [Unknown]
  - Vitamin B complex deficiency [Unknown]
  - Glucose tolerance impaired [Unknown]
  - Withdrawal syndrome [Unknown]
  - Feeling abnormal [Unknown]
  - Malaise [Unknown]
  - Dehydration [Unknown]
  - Nervous system disorder [Unknown]
